FAERS Safety Report 10509099 (Version 1)
Quarter: 2014Q3

REPORT INFORMATION
  Report Type: Spontaneous
  Country: US (occurrence: None)
  Receive Date: 20140915
  Receipt Date: 20140915
  Transmission Date: 20150326
  Serious: Yes (Other)
  Sender: FDA-Public Use
  Company Number: 2014-US-002333

PATIENT
  Age: 31 Year
  Sex: Male

DRUGS (12)
  1. ZOFRAN (ONDANSETRON HYDROCHLORIDE) [Concomitant]
  2. ALLEGRA (FEXOFENADINE HYDROCHLORIDE) [Concomitant]
  3. FISH OIL (FISH OIL) [Concomitant]
     Active Substance: FISH OIL
  4. TESTOSTERONE CYPIONATE (TESTOSTERONE CIPIONATE) [Concomitant]
  5. ROBAXIN (METHOCARBAMOL) [Concomitant]
  6. LISINOPRIL (LISINOPRIL DIHYDRATE) [Concomitant]
  7. XYREM [Suspect]
     Active Substance: SODIUM OXYBATE
     Indication: CATAPLEXY
     Route: 048
     Dates: start: 200504
  8. PROVIGIL [Concomitant]
     Active Substance: MODAFINIL
  9. MELATONIN (MELATONIN) [Concomitant]
     Active Substance: MELATONIN
  10. XYREM [Suspect]
     Active Substance: SODIUM OXYBATE
     Indication: NARCOLEPSY
     Route: 048
     Dates: start: 200504
  11. DOXEPIN (DOXEPIN HYDROCHLORIDE) [Concomitant]
  12. NAPROXEN (NAPROXEN SODIUM) [Concomitant]

REACTIONS (4)
  - Substance abuse [None]
  - Drug abuse [None]
  - Fatigue [None]
  - Drug dependence [None]

NARRATIVE: CASE EVENT DATE: 2013
